FAERS Safety Report 9565304 (Version 2)
Quarter: 2013Q4

REPORT INFORMATION
  Report Type: Spontaneous
  Country: IT (occurrence: IT)
  Receive Date: 20130930
  Receipt Date: 20131107
  Transmission Date: 20140711
  Serious: Yes (Life-Threatening)
  Sender: FDA-Public Use
  Company Number: IT-TEVA-433766ISR

PATIENT
  Age: 57 Year
  Sex: Male

DRUGS (2)
  1. CEFAZOLINA TEVA [Suspect]
     Indication: PROPHYLAXIS
     Dosage: 2 GRAM DAILY;
     Route: 042
     Dates: start: 20130909, end: 20130909
  2. MARCAINA [Concomitant]
     Dosage: .5 MILLIGRAM DAILY; HYPERBARIC INJECTABLE SOLUTION

REACTIONS (5)
  - Abdominal pain upper [Recovered/Resolved]
  - Retching [Recovered/Resolved]
  - Vertigo [Recovered/Resolved]
  - Loss of consciousness [Recovered/Resolved]
  - Cardiac arrest [Recovered/Resolved]
